FAERS Safety Report 6707830-1 (Version None)
Quarter: 2010Q2

REPORT INFORMATION
  Report Type: 
  Country: None (occurrence: None)
  Receive Date: 20100503
  Receipt Date: 20090831
  Transmission Date: 20101027
  Serious: No
  Sender: FDA-Public Use
  Company Number: US-ASTRAZENECA-2009SE10958

PATIENT
  Age: 58 Year
  Sex: Female
  Weight: 52.6 kg

DRUGS (2)
  1. NEXIUM [Suspect]
     Indication: GASTROOESOPHAGEAL REFLUX DISEASE
     Route: 048
     Dates: start: 20030101
  2. VITAMINS [Concomitant]

REACTIONS (6)
  - BREAST CANCER [None]
  - DIARRHOEA [None]
  - GALLBLADDER OPERATION [None]
  - GASTRIC DISORDER [None]
  - OSTEOPOROSIS [None]
  - VOMITING [None]
